FAERS Safety Report 5054766-0 (Version None)
Quarter: 2006Q3

REPORT INFORMATION
  Report Type: 
  Country: None (occurrence: None)
  Receive Date: 20060719
  Receipt Date: 20060712
  Transmission Date: 20061208
  Serious: Yes (Hospitalization)
  Sender: FDA-Public Use
  Company Number: US-AVENTIS-200615885US

PATIENT
  Age: 65 Year
  Sex: Female
  Weight: 88.6 kg

DRUGS (1)
  1. LOVENOX [Suspect]
     Indication: PULMONARY EMBOLISM
     Dates: start: 20060514, end: 20060531

REACTIONS (5)
  - HAEMATOMA [None]
  - MALAISE [None]
  - OEDEMA [None]
  - PULMONARY OEDEMA [None]
  - RENAL FAILURE [None]
